FAERS Safety Report 18059050 (Version 1)
Quarter: 2020Q3

REPORT INFORMATION
  Report Type: Spontaneous
  Country: US (occurrence: US)
  Receive Date: 20200723
  Receipt Date: 20200723
  Transmission Date: 20201103
  Serious: No
  Sender: FDA-Public Use
  Company Number: US-SA-2020SA190690

PATIENT

DRUGS (3)
  1. SELSUN BLUE MEDICATED [Suspect]
     Active Substance: SELENIUM SULFIDE
     Indication: PRURITUS
  2. SELSUN BLUE MEDICATED [Suspect]
     Active Substance: SELENIUM SULFIDE
     Indication: DANDRUFF
     Dosage: UNK
  3. SELSUN BLUE MEDICATED [Suspect]
     Active Substance: SELENIUM SULFIDE
     Indication: SCRATCH

REACTIONS (1)
  - Skin haemorrhage [Unknown]
